FAERS Safety Report 6101657-X (Version None)
Quarter: 2009Q1

REPORT INFORMATION
  Report Type: 
  Country: None (occurrence: None)
  Receive Date: 20090303
  Receipt Date: 20090303
  Transmission Date: 20090719
  Serious: Yes (Other)
  Sender: FDA-Public Use
  Company Number: None

PATIENT
  Age: 48 Year
  Sex: Female
  Weight: 90.7194 kg

DRUGS (1)
  1. ACTONEL [Suspect]
     Indication: RESORPTION BONE INCREASED
     Dosage: 1 TABLET MONTHLY PO
     Route: 048
     Dates: start: 20090122, end: 20090226

REACTIONS (18)
  - ABDOMINAL PAIN UPPER [None]
  - ARTHRALGIA [None]
  - BACK PAIN [None]
  - CHEST PAIN [None]
  - CHILLS [None]
  - DIZZINESS [None]
  - EYE IRRITATION [None]
  - EYE PRURITUS [None]
  - EYE SWELLING [None]
  - FATIGUE [None]
  - GINGIVAL BLEEDING [None]
  - GINGIVAL PAIN [None]
  - HEADACHE [None]
  - INFLUENZA LIKE ILLNESS [None]
  - NECK PAIN [None]
  - PHOTOPHOBIA [None]
  - PRURITUS [None]
  - SKIN IRRITATION [None]
